FAERS Safety Report 14742235 (Version 1)
Quarter: 2018Q2

REPORT INFORMATION
  Report Type: Report from Study
  Country: US (occurrence: US)
  Receive Date: 20180410
  Receipt Date: 20180410
  Transmission Date: 20180711
  Serious: Yes (Other)
  Sender: FDA-Public Use
  Company Number: US-AMGEN-USASL2018046737

PATIENT
  Age: 60 Year
  Sex: Male

DRUGS (1)
  1. REPATHA [Suspect]
     Active Substance: EVOLOCUMAB
     Indication: PRODUCT USED FOR UNKNOWN INDICATION
     Dosage: UNK
     Route: 065

REACTIONS (8)
  - Night sweats [Unknown]
  - Tinea pedis [Unknown]
  - Gingival pain [Unknown]
  - Tinea cruris [Unknown]
  - Cellulitis [Unknown]
  - Chills [Unknown]
  - Ephelides [Unknown]
  - Glossodynia [Unknown]
